FAERS Safety Report 4612916-1 (Version None)
Quarter: 2005Q1

REPORT INFORMATION
  Report Type: 
  Country: None (occurrence: None)
  Receive Date: 20050318
  Receipt Date: 20040903
  Transmission Date: 20050727
  Serious: Yes (Hospitalization)
  Sender: FDA-Public Use
  Company Number: DE-GLAXOSMITHKLINE-D0044607A

PATIENT
  Age: 79 Year
  Sex: Male
  Weight: 72 kg

DRUGS (5)
  1. AUGMENTIN '125' [Suspect]
     Indication: BRONCHITIS ACUTE
     Dosage: 1.2G THREE TIMES PER DAY
     Route: 042
     Dates: start: 20040505, end: 20040510
  2. ASPIRIN [Concomitant]
     Indication: CEREBROVASCULAR ACCIDENT
     Dosage: 300MG PER DAY
     Route: 048
  3. ACTRAPHANE [Concomitant]
     Indication: DIABETES MELLITUS
     Dosage: 38IU PER DAY
     Route: 065
  4. HEPARIN [Concomitant]
     Indication: CEREBROVASCULAR ACCIDENT
     Dosage: 7500IU TWICE PER DAY
     Route: 058
  5. RANITIDINE [Concomitant]
     Dosage: 300MG PER DAY
     Route: 048

REACTIONS (2)
  - INJECTION SITE THROMBOSIS [None]
  - THROMBOPHLEBITIS [None]
